FAERS Safety Report 23604005 (Version 1)
Quarter: 2024Q1

REPORT INFORMATION
  Report Type: Other
  Country: US (occurrence: None)
  Receive Date: 20240307
  Receipt Date: 20240307
  Transmission Date: 20240410
  Serious: Yes (Other)
  Sender: FDA-Public Use
  Company Number: US-ROCHE-3520049

PATIENT

DRUGS (1)
  1. ATEZOLIZUMAB [Suspect]
     Active Substance: ATEZOLIZUMAB
     Indication: Alveolar soft part sarcoma
     Route: 065

REACTIONS (10)
  - Blood creatine phosphokinase increased [Unknown]
  - White blood cell count decreased [Unknown]
  - Weight increased [Unknown]
  - Parotitis [Unknown]
  - Anaemia [Unknown]
  - Thyroiditis [Unknown]
  - Cancer pain [Unknown]
  - Hepatic function abnormal [Unknown]
  - Pyrexia [Unknown]
  - Lymphocyte count decreased [Unknown]
